FAERS Safety Report 9895046 (Version 2)
Quarter: 2014Q1

REPORT INFORMATION
  Report Type: Spontaneous
  Country: US (occurrence: US)
  Receive Date: 20140213
  Receipt Date: 20140213
  Transmission Date: 20141002
  Serious: No
  Sender: FDA-Public Use
  Company Number: US-BRISTOL-MYERS SQUIBB COMPANY-17343849

PATIENT
  Age: 64 Year
  Sex: Female

DRUGS (1)
  1. ORENCIA [Suspect]
     Indication: RHEUMATOID ARTHRITIS
     Dosage: DOSAGE;4 VIALS?LAST INFUSION WAS ON 10JAN2013;?RECENT INFUSION 07FEB2013?250MG:INJECTION
     Route: 042
     Dates: start: 201211

REACTIONS (6)
  - Asthma [Unknown]
  - Hypertension [Unknown]
  - Thyroid function test abnormal [Unknown]
  - Pain [Unknown]
  - Arthropathy [Unknown]
  - Drug ineffective [Unknown]
